FAERS Safety Report 5557442-0 (Version None)
Quarter: 2007Q4

REPORT INFORMATION
  Report Type: 
  Country: None (occurrence: None)
  Receive Date: 20071214
  Receipt Date: 20071211
  Transmission Date: 20080405
  Serious: Yes (Other)
  Sender: FDA-Public Use
  Company Number: US-JNJFOC-20071203273

PATIENT
  Age: 50 Year
  Sex: Male
  Weight: 95.26 kg

DRUGS (4)
  1. MOTRIN IB [Suspect]
     Route: 048
  2. MOTRIN IB [Suspect]
     Indication: PAIN
     Route: 048
  3. VITAMIN B-12 [Concomitant]
     Indication: ANAEMIA PROPHYLAXIS
     Route: 050
  4. VALIUM [Concomitant]
     Indication: STRESS
     Dosage: AS NEEDED
     Route: 048

REACTIONS (1)
  - PARANOIA [None]
